FAERS Safety Report 9025247 (Version 1)
Quarter: 2012Q4

REPORT INFORMATION
  Report Type: 
  Country: US (occurrence: US)
  Receive Date: 20121211
  Receipt Date: 20121211
  Transmission Date: 20130627
  Serious: Yes (Other)
  Sender: FDA-Public Use
  Company Number: PHEH2012US024060

PATIENT
  Sex: Female

DRUGS (5)
  1. EXELON PATCH [Suspect]
     Dosage: 4.5 mg, Daily
     Route: 062
  2. ASPIRIN [Suspect]
  3. ATENOLOL [Concomitant]
  4. POTASSIUM [Concomitant]
  5. DIGOXIN [Concomitant]

REACTIONS (2)
  - Haemorrhoids [Unknown]
  - Rectal haemorrhage [Unknown]
